FAERS Safety Report 16837043 (Version 1)
Quarter: 2019Q3

REPORT INFORMATION
  Report Type: Spontaneous
  Country: US (occurrence: US)
  Receive Date: 20190923
  Receipt Date: 20190923
  Transmission Date: 20191005
  Serious: No
  Sender: FDA-Public Use
  Company Number: US-NOVEN PHARMACEUTICALS, INC.-US2018000694

PATIENT

DRUGS (2)
  1. COMBIPATCH [Suspect]
     Active Substance: ESTRADIOL\NORETHINDRONE ACETATE
     Dosage: KEPT THE PATCH FOR LONGER DURATION, UNKNOWN
     Route: 062
  2. COMBIPATCH [Suspect]
     Active Substance: ESTRADIOL\NORETHINDRONE ACETATE
     Indication: HORMONE REPLACEMENT THERAPY
     Dosage: USED CUT PATCH OF 50/140 MG, UNKNOWN
     Route: 062

REACTIONS (4)
  - Dry skin [Not Recovered/Not Resolved]
  - Wrong technique in product usage process [Unknown]
  - Incorrect product administration duration [Unknown]
  - Blood oestrogen decreased [Unknown]
